FAERS Safety Report 21345252 (Version 1)
Quarter: 2022Q3

REPORT INFORMATION
  Report Type: Spontaneous
  Country: US (occurrence: US)
  Receive Date: 20220916
  Receipt Date: 20220916
  Transmission Date: 20221027
  Serious: No
  Sender: FDA-Public Use
  Company Number: US-REGENERON PHARMACEUTICALS, INC.-2022-095563

PATIENT
  Sex: Male

DRUGS (8)
  1. PRALUENT [Suspect]
     Active Substance: ALIROCUMAB
     Indication: Hypercholesterolaemia
     Dosage: 150 MG, Q2W
     Route: 058
     Dates: start: 202207, end: 202207
  2. ALPRAZOLAM [Concomitant]
     Active Substance: ALPRAZOLAM
     Indication: Product used for unknown indication
     Dosage: 0.5 MG
     Route: 065
  3. ASPIRIN [Concomitant]
     Active Substance: ASPIRIN
     Indication: Product used for unknown indication
     Dosage: 81 MG, QD
     Route: 065
  4. CLOPIDOGREL [Concomitant]
     Active Substance: CLOPIDOGREL BISULFATE
     Indication: Product used for unknown indication
     Dosage: 75 MG, QD
     Route: 065
  5. NITROSTAT [Concomitant]
     Active Substance: NITROGLYCERIN
     Indication: Chest pain
     Dosage: UNK, AS NECESSARY
     Route: 065
  6. OXYCODONE [Concomitant]
     Active Substance: OXYCODONE
     Indication: Pain
     Dosage: 10 MG, PRN Q6 HRS
     Route: 065
  7. VALACYCLOVIR [Concomitant]
     Active Substance: VALACYCLOVIR HYDROCHLORIDE
     Indication: Product used for unknown indication
     Dosage: 500 MG, PRN DAILY
     Route: 065
  8. ESZOPICLONE [Concomitant]
     Active Substance: ESZOPICLONE
     Indication: Product used for unknown indication
     Dosage: 2 MG, AS NECESSARY
     Route: 065

REACTIONS (3)
  - Dizziness [Recovered/Resolved]
  - Influenza like illness [Recovered/Resolved]
  - Nasopharyngitis [Recovered/Resolved]

NARRATIVE: CASE EVENT DATE: 20220701
